FAERS Safety Report 24784812 (Version 3)
Quarter: 2025Q3

REPORT INFORMATION
  Report Type: Spontaneous
  Country: JP (occurrence: JP)
  Receive Date: 20241228
  Receipt Date: 20250809
  Transmission Date: 20251020
  Serious: Yes (Life-Threatening, Hospitalization)
  Sender: ALEXION PHARMACEUTICALS
  Company Number: JP-ASTRAZENECA-240145965_012620_P_1

PATIENT
  Age: 70 Year
  Sex: Female

DRUGS (12)
  1. FULVESTRANT [Suspect]
     Active Substance: FULVESTRANT
     Indication: Breast cancer
  2. FULVESTRANT [Suspect]
     Active Substance: FULVESTRANT
  3. TRUQAP [Suspect]
     Active Substance: CAPIVASERTIB
     Indication: Breast cancer
     Dosage: ON A 4-DAY-ON, 3-DAY-OFF SCHEDULE
  4. TRUQAP [Suspect]
     Active Substance: CAPIVASERTIB
     Dosage: ON A 4-DAY-ON, 3-DAY-OFF SCHEDULE
     Dates: start: 20241206, end: 20241209
  5. LAFUTIDINE [Concomitant]
     Active Substance: LAFUTIDINE
     Dosage: AFTER BREAKFAST AND EVENING MEAL
  6. FEXOFENADINE HYDROCHLORIDE [Concomitant]
     Active Substance: FEXOFENADINE HYDROCHLORIDE
     Dosage: AFTER BREAKFAST AND EVENING MEAL
  7. XARELTO [Concomitant]
     Active Substance: RIVAROXABAN
     Dosage: AFTER BREAKFAST
  8. METHYLCOBALAMIN [Concomitant]
     Active Substance: METHYLCOBALAMIN
     Dosage: AFTER EACH MEAL
  9. MIROGABALIN BESYLATE [Concomitant]
     Active Substance: MIROGABALIN BESYLATE
     Dosage: AFTER BREAKFAST AND EVENING MEAL
  10. BONALON [Concomitant]
     Active Substance: ALENDRONATE SODIUM
     Dosage: AT THE TIME OF AWAKENING, SATURDAY
  11. GATIFLOXACIN [Concomitant]
     Active Substance: GATIFLOXACIN
  12. FLUOROMETHOLONE [Concomitant]
     Active Substance: FLUOROMETHOLONE

REACTIONS (1)
  - Hyperglycaemia [Recovered/Resolved]
